FAERS Safety Report 10953192 (Version 5)
Quarter: 2015Q2

REPORT INFORMATION
  Report Type: Report from Study
  Country: DE (occurrence: DE)
  Receive Date: 20150325
  Receipt Date: 20150528
  Transmission Date: 20150821
  Serious: Yes (Death, Hospitalization, Other)
  Sender: FDA-Public Use
  Company Number: DE-ROCHE-1555705

PATIENT
  Age: 74 Year
  Sex: Male
  Weight: 67 kg

DRUGS (7)
  1. NOVALGIN [Concomitant]
     Active Substance: METAMIZOLE SODIUM
     Indication: PAIN
     Route: 048
  2. ASPIRIN. [Concomitant]
     Active Substance: ASPIRIN
     Route: 048
     Dates: start: 2004
  3. TAMSULOSIN [Concomitant]
     Active Substance: TAMSULOSIN
     Indication: BENIGN PROSTATIC HYPERPLASIA
     Route: 048
  4. DUROGESIC [Concomitant]
     Active Substance: FENTANYL
     Indication: PAIN
     Route: 062
  5. CARVEDILOL. [Concomitant]
     Active Substance: CARVEDILOL
     Indication: HYPERTENSION
     Route: 048
  6. SORBISTERIT [Concomitant]
     Route: 048
     Dates: start: 20150321
  7. BEVACIZUMAB [Suspect]
     Active Substance: BEVACIZUMAB
     Indication: METASTATIC BRONCHIAL CARCINOMA
     Route: 042
     Dates: start: 20140408, end: 20150323

REACTIONS (5)
  - Acute kidney injury [Fatal]
  - Paraplegia [Recovered/Resolved]
  - Blood creatinine increased [Recovering/Resolving]
  - Blood creatinine increased [Unknown]
  - Oedema [Unknown]

NARRATIVE: CASE EVENT DATE: 20141007
